FAERS Safety Report 4556436-1 (Version None)
Quarter: 2005Q1

REPORT INFORMATION
  Report Type: 
  Country: None (occurrence: None)
  Receive Date: 20050114
  Receipt Date: 20050111
  Transmission Date: 20050727
  Serious: Yes (Other)
  Sender: FDA-Public Use
  Company Number: FR-2004-031195

PATIENT
  Age: 70 Year
  Sex: Male
  Weight: 80 kg

DRUGS (4)
  1. CAMPATH [Suspect]
     Indication: CHRONIC LYMPHOCYTIC LEUKAEMIA
     Dosage: 30 MG/D, 3X/WEEK, INTRAVENOUS
     Route: 042
     Dates: start: 20040517, end: 20040730
  2. ONDANSETRON HYDROCHLORIDE [Concomitant]
  3. ZELITREX /NET/ (VALACICLOVIR HYDROCHLORIDE) [Concomitant]
  4. BACTRIM DS [Concomitant]

REACTIONS (3)
  - CONDITION AGGRAVATED [None]
  - HISTIOCYTOSIS HAEMATOPHAGIC [None]
  - PANCYTOPENIA [None]
